FAERS Safety Report 23098009 (Version 1)
Quarter: 2023Q4

REPORT INFORMATION
  Report Type: Report from Study
  Country: US (occurrence: US)
  Receive Date: 20231023
  Receipt Date: 20231023
  Transmission Date: 20240110
  Serious: Yes (Other)
  Sender: FDA-Public Use
  Company Number: US-JNJFOC-20231045592

PATIENT

DRUGS (5)
  1. REMICADE [Suspect]
     Active Substance: INFLIXIMAB
     Indication: Inflammatory bowel disease
     Route: 041
  2. SIMPONI [Suspect]
     Active Substance: GOLIMUMAB
     Indication: Inflammatory bowel disease
     Route: 058
  3. ADALIMUMAB [Suspect]
     Active Substance: ADALIMUMAB\ISOPROPYL ALCOHOL
     Indication: Inflammatory bowel disease
     Route: 065
  4. VEDOLIZUMAB [Suspect]
     Active Substance: VEDOLIZUMAB
     Indication: Inflammatory bowel disease
     Route: 065
  5. CERTOLIZUMAB PEGOL [Suspect]
     Active Substance: CERTOLIZUMAB PEGOL
     Indication: Inflammatory bowel disease
     Route: 065

REACTIONS (15)
  - Pneumonia [Unknown]
  - Sepsis [Unknown]
  - Clostridium difficile infection [Unknown]
  - Cytomegalovirus infection [Unknown]
  - Cardiac failure [Unknown]
  - Neoplasm malignant [Unknown]
  - Skin cancer [Unknown]
  - Urinary tract infection [Unknown]
  - Abscess [Unknown]
  - Tooth infection [Unknown]
  - Herpes zoster [Unknown]
  - Hypersensitivity [Unknown]
  - Infection [Unknown]
  - Infusion related reaction [Unknown]
  - Adverse event [Unknown]
